FAERS Safety Report 22239548 (Version 2)
Quarter: 2023Q2

REPORT INFORMATION
  Report Type: Spontaneous
  Country: US (occurrence: US)
  Receive Date: 20230421
  Receipt Date: 20230424
  Transmission Date: 20230721
  Serious: Yes (Hospitalization)
  Sender: FDA-Public Use
  Company Number: US-BRISTOL-MYERS SQUIBB COMPANY-2023-053796

PATIENT
  Age: 90 Year
  Sex: Male

DRUGS (1)
  1. REBLOZYL [Suspect]
     Active Substance: LUSPATERCEPT-AAMT
     Indication: Product used for unknown indication
     Dosage: DOSE : UNAVAILABLE;     FREQ : ADMINISTER 150MG SUBCUTANEOUSLY EVERY 3 WEEKS.
     Route: 058

REACTIONS (1)
  - Hospitalisation [Unknown]
